FAERS Safety Report 15262088 (Version 1)
Quarter: 2018Q3

REPORT INFORMATION
  Report Type: Spontaneous
  Country: FR (occurrence: FR)
  Receive Date: 20180809
  Receipt Date: 20180809
  Transmission Date: 20181010
  Serious: Yes (Hospitalization)
  Sender: FDA-Public Use
  Company Number: PHHY2018FR067608

PATIENT
  Age: 75 Year
  Sex: Male
  Weight: 78 kg

DRUGS (2)
  1. IZALGI [Suspect]
     Active Substance: ACETAMINOPHEN\OPIUM
     Indication: BACK PAIN
     Dosage: 3 DF, QD
     Route: 048
     Dates: start: 20180404, end: 20180417
  2. OFLOXACINE [Suspect]
     Active Substance: OFLOXACIN
     Indication: PROSTATITIS
     Dosage: 400 MG, QD
     Route: 048
     Dates: start: 20180404, end: 20180417

REACTIONS (2)
  - Confusional state [Recovered/Resolved]
  - Persecutory delusion [Recovered/Resolved]

NARRATIVE: CASE EVENT DATE: 20180417
